FAERS Safety Report 4883357-7 (Version None)
Quarter: 2006Q1

REPORT INFORMATION
  Report Type: 
  Country: None (occurrence: None)
  Receive Date: 20060118
  Receipt Date: 20041202
  Transmission Date: 20060701
  Serious: Yes (Life-Threatening, Hospitalization, Other)
  Sender: FDA-Public Use
  Company Number: 2004GB03012

PATIENT
  Age: 23630 Day
  Sex: Female

DRUGS (7)
  1. GEFITINIB [Suspect]
     Indication: BREAST CANCER
     Route: 048
     Dates: start: 20041108, end: 20041202
  2. ARIMIDEX [Suspect]
     Indication: BREAST CANCER
     Route: 048
     Dates: start: 20041021
  3. ZD1839 PLACEBO [Suspect]
     Indication: BREAST CANCER
     Route: 048
     Dates: start: 20041021, end: 20041108
  4. CLOBETASOL [Concomitant]
     Indication: STASIS DERMATITIS
     Route: 061
     Dates: start: 20041001
  5. GELOFUSION [Concomitant]
     Route: 042
     Dates: start: 20041202, end: 20041203
  6. HEPARIN [Concomitant]
     Dosage: UNITS OVER 24HRS
     Route: 042
     Dates: start: 20041202, end: 20041202
  7. NORMAL SALINE [Concomitant]
     Route: 042
     Dates: start: 20041202, end: 20041202

REACTIONS (3)
  - DEEP VEIN THROMBOSIS [None]
  - RETROPERITONEAL HAEMORRHAGE [None]
  - SYNCOPE VASOVAGAL [None]
